FAERS Safety Report 7506706-X (Version None)
Quarter: 2011Q2

REPORT INFORMATION
  Report Type: 
  Country: None (occurrence: None)
  Receive Date: 20110526
  Receipt Date: 20110516
  Transmission Date: 20111010
  Serious: Yes (Other)
  Sender: FDA-Public Use
  Company Number: US-BAYER-2011-041981

PATIENT
  Age: 56 Year
  Sex: Female

DRUGS (4)
  1. AVELOX [Suspect]
     Indication: PHARYNGITIS
  2. AVELOX [Suspect]
     Indication: EAR INFECTION
     Dosage: 400 MG, ONCE
     Route: 048
     Dates: start: 20110509, end: 20110509
  3. FIORICET [Concomitant]
  4. AVELOX [Suspect]
     Indication: RHINITIS

REACTIONS (7)
  - ANAPHYLACTIC SHOCK [None]
  - URTICARIA [None]
  - HYPOAESTHESIA [None]
  - HALLUCINATION [None]
  - MENSTRUATION IRREGULAR [None]
  - HYPOAESTHESIA ORAL [None]
  - DYSPNOEA [None]
